FAERS Safety Report 13614187 (Version 1)
Quarter: 2017Q2

REPORT INFORMATION
  Report Type: Spontaneous
  Country: FR (occurrence: FR)
  Receive Date: 20170606
  Receipt Date: 20170606
  Transmission Date: 20170830
  Serious: Yes (Hospitalization)
  Sender: FDA-Public Use
  Company Number: FR-ROCHE-1943201

PATIENT
  Age: 87 Year
  Sex: Female

DRUGS (6)
  1. SPECIAFOLDINE [Concomitant]
     Active Substance: FOLIC ACID
     Route: 048
  2. LASILIX FAIBLE [Concomitant]
     Active Substance: FUROSEMIDE
     Route: 048
     Dates: start: 20170320, end: 20170328
  3. CORTANCYL [Concomitant]
     Active Substance: PREDNISONE
     Route: 048
  4. MABTHERA [Suspect]
     Active Substance: RITUXIMAB
     Indication: AUTOIMMUNE HAEMOLYTIC ANAEMIA
     Dosage: SECOND  TREATMENT ON 17/MAR/2017 AND 3RD TREATMENT ON 28/MAR/2017
     Route: 041
     Dates: start: 20170221, end: 20170405
  5. CACIT (FRANCE) [Concomitant]
     Route: 048
  6. VITAMIN B12 [Concomitant]
     Active Substance: CYANOCOBALAMIN
     Dosage: 12 TABLET PER DAY
     Route: 048
     Dates: start: 20170214, end: 20170228

REACTIONS (4)
  - Product use in unapproved indication [Unknown]
  - Febrile neutropenia [Recovered/Resolved]
  - Off label use [Unknown]
  - Bronchopneumopathy [Recovered/Resolved]

NARRATIVE: CASE EVENT DATE: 20170415
